FAERS Safety Report 8432903-5 (Version None)
Quarter: 2012Q2

REPORT INFORMATION
  Report Type: 
  Country: None (occurrence: None)
  Receive Date: 20120613
  Receipt Date: 20120604
  Transmission Date: 20120825
  Serious: Yes (Other)
  Sender: FDA-Public Use
  Company Number: US-JNJFOC-20120602783

PATIENT
  Sex: Male
  Weight: 90.72 kg

DRUGS (2)
  1. REMICADE [Suspect]
     Indication: CROHN'S DISEASE
     Dosage: 6 VIALS
     Route: 042
     Dates: start: 20000101
  2. NICORET [Concomitant]
     Indication: SMOKING CESSATION THERAPY
     Route: 048

REACTIONS (1)
  - HERNIA [None]
